FAERS Safety Report 5024379-5 (Version None)
Quarter: 2006Q2

REPORT INFORMATION
  Report Type: 
  Country: None (occurrence: None)
  Receive Date: 20060426
  Receipt Date: 20060301
  Transmission Date: 20061013
  Serious: Yes (Other)
  Sender: FDA-Public Use
  Company Number: 2006032245

PATIENT
  Age: 43 Year
  Sex: Female
  Weight: 62.5964 kg

DRUGS (8)
  1. LYRICA [Suspect]
     Indication: NEURALGIA
     Dosage: 150 MG (75 MG,2 IN 1 D)
     Dates: start: 20060101
  2. PREVACID [Concomitant]
  3. LEVORA 0.15/30-21 [Concomitant]
  4. FLONASE [Concomitant]
  5. VOLTAREN [Concomitant]
  6. IBUPROFEN [Concomitant]
  7. CORTICOSTEROIDS, DERMATOLOGICAL PREPARATIONS (CORTICOSTEROIDS, DERMATO [Concomitant]
  8. ANALGESICS (ANALGESICS) [Concomitant]

REACTIONS (9)
  - CRYING [None]
  - DIZZINESS [None]
  - IMPATIENCE [None]
  - IRRITABILITY [None]
  - MEMORY IMPAIRMENT [None]
  - SINUSITIS [None]
  - THINKING ABNORMAL [None]
  - VISION BLURRED [None]
  - WEIGHT INCREASED [None]
